FAERS Safety Report 5804043-2 (Version None)
Quarter: 2008Q3

REPORT INFORMATION
  Report Type: 
  Country: None (occurrence: None)
  Receive Date: 20080702
  Receipt Date: 20080104
  Transmission Date: 20090109
  Serious: Yes (Other)
  Sender: FDA-Public Use
  Company Number: MPSI-1000006

PATIENT
  Age: 5 Year
  Sex: Female
  Weight: 13.6 kg

DRUGS (5)
  1. ALDURAZYME [Suspect]
     Indication: MUCOPOLYSACCHARIDOSIS I
     Dosage: 2.8 MG, QW, INTRAVENOUS
     Route: 042
     Dates: start: 20040115
  2. XOPENEX [Concomitant]
  3. PULMICORT [Concomitant]
  4. ACETAMINOPHEN [Concomitant]
  5. BENADRYL [Concomitant]

REACTIONS (3)
  - BRONCHITIS [None]
  - UPPER RESPIRATORY TRACT INFECTION [None]
  - URTICARIA [None]
